FAERS Safety Report 7069249-6 (Version None)
Quarter: 2010Q4

REPORT INFORMATION
  Report Type: 
  Country: None (occurrence: None)
  Receive Date: 20101020
  Receipt Date: 20101005
  Transmission Date: 20110411
  Serious: Yes (Other)
  Sender: FDA-Public Use
  Company Number: SE-DEXPHARM-20101549

PATIENT
  Age: 57 Year
  Sex: Female

DRUGS (1)
  1. OMEPRAZOLE [Suspect]
     Dosage: DOSAGE TEXT: 20-40 MG/DAY
     Dates: start: 20000101

REACTIONS (2)
  - DRUG INTERACTION [None]
  - STRESS FRACTURE [None]
